FAERS Safety Report 13008999 (Version 1)
Quarter: 2016Q4

REPORT INFORMATION
  Report Type: Spontaneous
  Country: US (occurrence: US)
  Receive Date: 20161208
  Receipt Date: 20161208
  Transmission Date: 20170207
  Serious: Yes (Death)
  Sender: FDA-Public Use
  Company Number: US-PFIZER INC-2016562962

PATIENT
  Age: 55 Year
  Sex: Male

DRUGS (1)
  1. SUTENT [Suspect]
     Active Substance: SUNITINIB MALATE
     Indication: GASTRIC CANCER
     Dosage: 12.5 MG, 1X/DAY
     Route: 048
     Dates: start: 20140506, end: 20161122

REACTIONS (1)
  - Death [Fatal]

NARRATIVE: CASE EVENT DATE: 20161122
